FAERS Safety Report 4291145-8 (Version None)
Quarter: 2004Q1

REPORT INFORMATION
  Report Type: 
  Country: None (occurrence: None)
  Receive Date: 20040211
  Receipt Date: 20031105
  Transmission Date: 20041129
  Serious: No
  Sender: FDA-Public Use
  Company Number: US-GLAXOSMITHKLINE-A0433125A

PATIENT
  Age: 12 Year
  Sex: Male

DRUGS (4)
  1. PAXIL [Suspect]
     Dosage: 20MG PER DAY
     Route: 048
     Dates: start: 20020101
  2. STRATTERA [Concomitant]
  3. CLONIDINE [Concomitant]
  4. ZYPREXA [Concomitant]

REACTIONS (1)
  - AGGRESSION [None]
